FAERS Safety Report 5023800-6 (Version None)
Quarter: 2006Q2

REPORT INFORMATION
  Report Type: 
  Country: None (occurrence: None)
  Receive Date: 20060606
  Receipt Date: 20060526
  Transmission Date: 20061013
  Serious: Yes (Hospitalization)
  Sender: FDA-Public Use
  Company Number: SU-2006-004988

PATIENT
  Age: 52 Year
  Sex: Male
  Weight: 121.564 kg

DRUGS (8)
  1. BENICAR [Suspect]
     Indication: BLOOD PRESSURE
     Dosage: 20 MG QD PO
     Route: 048
     Dates: start: 20050501, end: 20060401
  2. BENICAR HCT [Suspect]
     Indication: BLOOD PRESSURE
     Dosage: 40.25 MG QD PO
     Route: 048
     Dates: start: 20060401
  3. SULAR [Suspect]
     Indication: BLOOD PRESSURE
     Dosage: 20 MG QM PO
     Route: 048
     Dates: start: 20050613, end: 20050615
  4. PROTONIX [Concomitant]
  5. NEURONTIN [Concomitant]
  6. HYDROCODONE BITARTRATE + ACETAMINOPHEN [Concomitant]
  7. ADVIL [Concomitant]
  8. HYDROCHLOROTHIAZIDE [Concomitant]

REACTIONS (6)
  - AGGRESSION [None]
  - BLOOD PRESSURE DECREASED [None]
  - DIZZINESS [None]
  - DYSSTASIA [None]
  - PAINFUL ERECTION [None]
  - SPINAL OPERATION [None]
